FAERS Safety Report 22390221 (Version 1)
Quarter: 2023Q2

REPORT INFORMATION
  Report Type: Spontaneous
  Country: IN (occurrence: IN)
  Receive Date: 20230531
  Receipt Date: 20230531
  Transmission Date: 20230722
  Serious: Yes (Hospitalization, Other)
  Sender: FDA-Public Use
  Company Number: IN-PFIZER INC-PV202300095142

PATIENT
  Age: 65 Year
  Sex: Male

DRUGS (4)
  1. LORLATINIB [Suspect]
     Active Substance: LORLATINIB
     Dosage: 100 MG, 1X/DAY
     Route: 048
     Dates: start: 202207
  2. LOSARTAN [Concomitant]
     Active Substance: LOSARTAN
     Indication: Hypertension
     Dosage: 25 MG
  3. APIXABAN [Concomitant]
     Active Substance: APIXABAN
     Indication: Thrombosis prophylaxis
  4. LEVETIRACETAM [Concomitant]
     Active Substance: LEVETIRACETAM
     Indication: Thrombosis prophylaxis
     Dosage: UNK

REACTIONS (10)
  - Paraparesis [Unknown]
  - Functional gastrointestinal disorder [Unknown]
  - Bladder dysfunction [Unknown]
  - Hydronephrosis [Unknown]
  - Urinary tract infection [Unknown]
  - Renal cyst [Unknown]
  - Cough [Unknown]
  - Pleural effusion [Unknown]
  - Condition aggravated [Unknown]
  - Neoplasm progression [Unknown]

NARRATIVE: CASE EVENT DATE: 20221110
